FAERS Safety Report 8111257-8 (Version None)
Quarter: 2012Q1

REPORT INFORMATION
  Report Type: 
  Country: None (occurrence: None)
  Receive Date: 20120203
  Receipt Date: 20110712
  Transmission Date: 20120608
  Serious: No
  Sender: FDA-Public Use
  Company Number: US-GLAXOSMITHKLINE-A0937097A

PATIENT
  Age: 39 Year
  Sex: Female

DRUGS (2)
  1. LAMICTAL [Suspect]
     Indication: PRODUCT USED FOR UNKNOWN INDICATION
     Dosage: 100MG UNKNOWN
     Route: 048
     Dates: start: 20100619
  2. LAMOTRIGINE [Suspect]
     Route: 048

REACTIONS (3)
  - DYSPHAGIA [None]
  - DRUG DISPENSING ERROR [None]
  - DRUG ADMINISTRATION ERROR [None]
